FAERS Safety Report 13048640 (Version 1)
Quarter: 2016Q4

REPORT INFORMATION
  Report Type: Spontaneous
  Country: GB (occurrence: GB)
  Receive Date: 20161221
  Receipt Date: 20161221
  Transmission Date: 20170207
  Serious: Yes (Other)
  Sender: FDA-Public Use
  Company Number: GB-ASTRAZENECA-2016SF30866

PATIENT
  Age: 78 Year
  Sex: Female
  Weight: 52.2 kg

DRUGS (4)
  1. ESOMEPRAZOLE [Suspect]
     Active Substance: ESOMEPRAZOLE
     Indication: HIATUS HERNIA
     Route: 048
     Dates: start: 20060315
  2. SERTRALINE [Concomitant]
     Active Substance: SERTRALINE HYDROCHLORIDE
     Dosage: 25.0MG UNKNOWN
     Route: 065
  3. ASPIRIN. [Concomitant]
     Active Substance: ASPIRIN
     Dosage: 75.0MG UNKNOWN
     Route: 065
  4. DISOPYRAMIDE [Concomitant]
     Active Substance: DISOPYRAMIDE
     Dosage: 100.0MG UNKNOWN
     Route: 065

REACTIONS (3)
  - Breast swelling [Not Recovered/Not Resolved]
  - Breast pain [Not Recovered/Not Resolved]
  - Product use issue [Unknown]

NARRATIVE: CASE EVENT DATE: 20060316
